FAERS Safety Report 16752407 (Version 2)
Quarter: 2019Q3

REPORT INFORMATION
  Report Type: Report from Study
  Country: US (occurrence: US)
  Receive Date: 20190828
  Receipt Date: 20190910
  Transmission Date: 20191005
  Serious: Yes (Hospitalization)
  Sender: FDA-Public Use
  Company Number: PHEH2019US035464

PATIENT
  Age: 42 Year
  Sex: Female
  Weight: 59.5 kg

DRUGS (3)
  1. WARFARIN [Concomitant]
     Active Substance: WARFARIN
     Indication: PRODUCT USED FOR UNKNOWN INDICATION
     Route: 065
  2. TREPROSTINIL. [Suspect]
     Active Substance: TREPROSTINIL
     Indication: PULMONARY ARTERIAL HYPERTENSION
     Dosage: 1 DF (14 NG/KG/MIN), CONTINUOUS
     Route: 042
     Dates: start: 20190822
  3. OPSUMIT [Concomitant]
     Active Substance: MACITENTAN
     Indication: PRODUCT USED FOR UNKNOWN INDICATION
     Route: 065

REACTIONS (2)
  - Pain in jaw [Unknown]
  - Thrombosis [Unknown]

NARRATIVE: CASE EVENT DATE: 20190822
